FAERS Safety Report 5450142-7 (Version None)
Quarter: 2007Q3

REPORT INFORMATION
  Report Type: 
  Country: None (occurrence: None)
  Receive Date: 20070912
  Receipt Date: 20070906
  Transmission Date: 20080115
  Serious: Yes (Other)
  Sender: FDA-Public Use
  Company Number: B0482856A

PATIENT
  Age: 87 Year
  Sex: Female
  Weight: 70 kg

DRUGS (4)
  1. ADARTREL [Suspect]
     Indication: RESTLESS LEGS SYNDROME
     Dosage: .25MG PER DAY
     Route: 048
     Dates: start: 20070710, end: 20070711
  2. MOGADON [Concomitant]
     Dosage: 5MG PER DAY
     Route: 048
  3. METOPROLOL SUCCINATE [Concomitant]
     Route: 048
     Dates: start: 20061103
  4. SERETIDE [Concomitant]
     Route: 055

REACTIONS (1)
  - ANGIOEDEMA [None]
